FAERS Safety Report 9617518 (Version 3)
Quarter: 2013Q4

REPORT INFORMATION
  Report Type: Spontaneous
  Country: US (occurrence: US)
  Receive Date: 20131011
  Receipt Date: 20131031
  Transmission Date: 20140711
  Serious: Yes (Other)
  Sender: FDA-Public Use
  Company Number: US-009507513-1310USA004819

PATIENT
  Sex: Female
  Weight: 74.38 kg

DRUGS (4)
  1. JANUVIA [Suspect]
     Indication: DIABETES MELLITUS
     Dosage: 50 MG, QD
     Route: 048
     Dates: start: 20130920, end: 20130930
  2. METFORMIN [Concomitant]
  3. LOVASTATIN [Concomitant]
     Route: 048
  4. AMLODIPINE [Concomitant]

REACTIONS (1)
  - Pancreatitis [Recovered/Resolved]
